FAERS Safety Report 4720853-7 (Version None)
Quarter: 2005Q3

REPORT INFORMATION
  Report Type: 
  Country: None (occurrence: None)
  Receive Date: 20050720
  Receipt Date: 20050711
  Transmission Date: 20060218
  Serious: Yes (Disabling, Other)
  Sender: FDA-Public Use
  Company Number: 2005-06-0009

PATIENT
  Age: 40 Year
  Sex: Male
  Weight: 80 kg

DRUGS (5)
  1. VIRAFERONPEG [Suspect]
     Indication: HEPATITIS C
     Dosage: 0.45 ML QW SUBCUTANEOUS
     Route: 058
     Dates: start: 20041019, end: 20050130
  2. REBETOL [Suspect]
     Indication: HEPATITIS C
     Dosage: 1 G QD ORAL
     Route: 048
     Dates: start: 20041019, end: 20040130
  3. SUBUTEX [Concomitant]
  4. OXAZEPAM [Concomitant]
  5. THERALENE [Concomitant]

REACTIONS (3)
  - DENTAL CARIES [None]
  - FATIGUE [None]
  - TOOTH FRACTURE [None]
